FAERS Safety Report 10477309 (Version 3)
Quarter: 2014Q4

REPORT INFORMATION
  Report Type: Spontaneous
  Country: ES (occurrence: None)
  Receive Date: 20140923
  Receipt Date: 20141008
  Transmission Date: 20150528
  Serious: Yes (Disabling)
  Sender: FDA-Public Use
  Company Number: 2014-20375

PATIENT
  Age: 78 Year
  Sex: Female

DRUGS (1)
  1. VEGF TRAP-EYE [Suspect]
     Active Substance: AFLIBERCEPT
     Indication: NEOVASCULAR AGE-RELATED MACULAR DEGENERATION
     Route: 031
     Dates: start: 20140331, end: 20140721

REACTIONS (5)
  - Rash erythematous [None]
  - Rash pruritic [None]
  - Rash [None]
  - Skin ulcer [None]
  - Hypersensitivity [None]

NARRATIVE: CASE EVENT DATE: 20140726
